FAERS Safety Report 6407344-2 (Version None)
Quarter: 2009Q4

REPORT INFORMATION
  Report Type: 
  Country: None (occurrence: None)
  Receive Date: 20091014
  Receipt Date: 20090921
  Transmission Date: 20100525
  Serious: Yes (Hospitalization)
  Sender: FDA-Public Use
  Company Number: JPI-P-008665

PATIENT
  Age: 40 Year
  Sex: Female

DRUGS (6)
  1. FLUVOXAMINE MALEATE [Suspect]
     Indication: DEPRESSION
     Dosage: (75 MG,1 D),ORAL
     Route: 048
     Dates: start: 20081101
  2. ETIZOLAM [Suspect]
     Indication: DEPRESSION
     Dosage: (1.5 MG, 1 D), ORAL
     Route: 048
     Dates: start: 20081101
  3. SULPIRIDE [Concomitant]
  4. ZOLPIDEM TARTRATE [Concomitant]
  5. FLUNITRAZEPAM [Concomitant]
  6. MIANSERIN  HYDROCHLORIDE [Concomitant]

REACTIONS (5)
  - ALANINE AMINOTRANSFERASE INCREASED [None]
  - ASPARTATE AMINOTRANSFERASE INCREASED [None]
  - BLOOD ALKALINE PHOSPHATASE INCREASED [None]
  - GAMMA-GLUTAMYLTRANSFERASE INCREASED [None]
  - LIVER DISORDER [None]
